FAERS Safety Report 10764945 (Version 2)
Quarter: 2016Q1

REPORT INFORMATION
  Report Type: Spontaneous
  Country: US (occurrence: US)
  Receive Date: 20150205
  Receipt Date: 20160119
  Transmission Date: 20160525
  Serious: No
  Sender: FDA-Public Use
  Company Number: US-PFIZER INC-2015046357

PATIENT
  Age: 75 Year
  Sex: Female

DRUGS (2)
  1. DILANTIN [Suspect]
     Active Substance: PHENYTOIN
     Indication: SEIZURE
     Dosage: 100 MG, 3-100 MG PER DAY
     Route: 048
     Dates: start: 1976
  2. DILANTIN [Suspect]
     Active Substance: PHENYTOIN
     Dosage: 100 MG, 1X/DAY (AT BEDTIME)
     Route: 048
     Dates: start: 20131204

REACTIONS (2)
  - Drug ineffective [Unknown]
  - Accident [Unknown]

NARRATIVE: CASE EVENT DATE: 2010
